FAERS Safety Report 5345113-5 (Version None)
Quarter: 2007Q2

REPORT INFORMATION
  Report Type: 
  Country: None (occurrence: None)
  Receive Date: 20070424
  Receipt Date: 20060623
  Transmission Date: 20071010
  Serious: Yes (Other)
  Sender: FDA-Public Use
  Company Number: WAES 0606USA04441

PATIENT
  Age: 60 Year
  Sex: Female

DRUGS (4)
  1. PRINZIDE [Suspect]
     Dosage: 20/12.5 MG/DAILY/PO
     Route: 048
  2. AGGRENOX [Concomitant]
  3. NORVASC [Concomitant]
  4. HYDRALAZINE HCL [Concomitant]

REACTIONS (1)
  - CEREBROVASCULAR ACCIDENT [None]
